FAERS Safety Report 10632505 (Version 1)
Quarter: 2014Q4

REPORT INFORMATION
  Report Type: Spontaneous
  Country: US (occurrence: US)
  Receive Date: 20141205
  Receipt Date: 20141205
  Transmission Date: 20150529
  Serious: Yes (Other)
  Sender: FDA-Public Use
  Company Number: US-BRISTOL-MYERS SQUIBB COMPANY-21531645

PATIENT
  Age: 60 Year
  Sex: Male
  Weight: 141.95 kg

DRUGS (15)
  1. FUROSEMIDE. [Concomitant]
     Active Substance: FUROSEMIDE
  2. BYSTOLIC [Concomitant]
     Active Substance: NEBIVOLOL HYDROCHLORIDE
  3. ALLOPURINOL. [Concomitant]
     Active Substance: ALLOPURINOL
  4. GLEEVEC [Concomitant]
     Active Substance: IMATINIB MESYLATE
  5. ELIQUIS [Concomitant]
     Active Substance: APIXABAN
  6. SPRYCEL [Suspect]
     Active Substance: DASATINIB
     Indication: CHRONIC MYELOID LEUKAEMIA
     Dosage: TABLET.
     Route: 048
     Dates: start: 20140917
  7. ASPIRIN. [Concomitant]
     Active Substance: ASPIRIN
  8. BUPROPION [Concomitant]
     Active Substance: BUPROPION
  9. POTASSIUM [Concomitant]
     Active Substance: POTASSIUM
  10. ZOLOFT [Concomitant]
     Active Substance: SERTRALINE HYDROCHLORIDE
  11. PRIMIDONE. [Concomitant]
     Active Substance: PRIMIDONE
  12. MICARDIS [Concomitant]
     Active Substance: TELMISARTAN
  13. OMEPRAZOLE. [Concomitant]
     Active Substance: OMEPRAZOLE
  14. TIKOSYN [Concomitant]
     Active Substance: DOFETILIDE
  15. SYNTHROID [Concomitant]
     Active Substance: LEVOTHYROXINE SODIUM

REACTIONS (1)
  - Electrocardiogram QT prolonged [Unknown]
